FAERS Safety Report 4684128-7 (Version None)
Quarter: 2005Q2

REPORT INFORMATION
  Report Type: 
  Country: None (occurrence: None)
  Receive Date: 20050602
  Receipt Date: 20050415
  Transmission Date: 20051028
  Serious: No
  Sender: FDA-Public Use
  Company Number: 200510771BWH

PATIENT
  Sex: Male

DRUGS (3)
  1. LEVITRA [Suspect]
     Dosage: 10 MG, PRN, ORAL
     Route: 048
     Dates: start: 20050401
  2. HORMONE SHOTS [Concomitant]
  3. VIAGRA [Concomitant]

REACTIONS (1)
  - DRUG INEFFECTIVE [None]
